FAERS Safety Report 5939154-4 (Version None)
Quarter: 2008Q4

REPORT INFORMATION
  Report Type: 
  Country: None (occurrence: None)
  Receive Date: 20081103
  Receipt Date: 20081024
  Transmission Date: 20090506
  Serious: Yes (Death, Hospitalization)
  Sender: FDA-Public Use
  Company Number: DK-AVENTIS-200819230GDDC

PATIENT
  Age: 5 Year
  Sex: Female

DRUGS (5)
  1. MINIRIN [Suspect]
     Indication: DIABETES INSIPIDUS
     Route: 045
     Dates: start: 20040714, end: 20040719
  2. PREDNISOLONE [Concomitant]
  3. LEOTHYROXINE [Concomitant]
  4. PHENYTOIN [Concomitant]
  5. RANITIDINE [Concomitant]

REACTIONS (7)
  - ASCITES [None]
  - BUDD-CHIARI SYNDROME [None]
  - HEPATIC ENZYME INCREASED [None]
  - HEPATIC FAILURE [None]
  - HEPATOSPLENOMEGALY [None]
  - RENAL FAILURE [None]
  - VENA CAVA THROMBOSIS [None]
